FAERS Safety Report 10414295 (Version 15)
Quarter: 2018Q1

REPORT INFORMATION
  Report Type: Report from Study
  Country: CA (occurrence: CA)
  Receive Date: 20140828
  Receipt Date: 20180307
  Transmission Date: 20180508
  Serious: Yes (Other)
  Sender: FDA-Public Use
  Company Number: CA-ROCHE-1210192

PATIENT
  Age: 47 Year
  Sex: Female
  Weight: 130 kg

DRUGS (20)
  1. ACTEMRA [Suspect]
     Active Substance: TOCILIZUMAB
     Route: 042
     Dates: start: 20141124
  2. PLAQUENIL [Concomitant]
     Active Substance: HYDROXYCHLOROQUINE SULFATE
  3. ATENOLOL. [Concomitant]
     Active Substance: ATENOLOL
  4. TUMS [Concomitant]
     Active Substance: CALCIUM CARBONATE
  5. PANTOPRAZOLE [Concomitant]
     Active Substance: PANTOPRAZOLE
  6. VENLAFAXINE [Concomitant]
     Active Substance: VENLAFAXINE HYDROCHLORIDE
  7. GRAVOL [Concomitant]
     Active Substance: DIMENHYDRINATE
  8. RAMIPRIL. [Concomitant]
     Active Substance: RAMIPRIL
  9. DOMPERIDONE [Concomitant]
     Active Substance: DOMPERIDONE
  10. VITAMIN C [Concomitant]
     Active Substance: ASCORBIC ACID
  11. HYDROCHLOROTHIAZIDE. [Concomitant]
     Active Substance: HYDROCHLOROTHIAZIDE
  12. DOVOBET [Concomitant]
     Active Substance: BETAMETHASONE\CALCIPOTRIENE
     Indication: PSORIASIS
  13. DILTIAZEM. [Concomitant]
     Active Substance: DILTIAZEM
  14. SULFASALAZINE. [Concomitant]
     Active Substance: SULFASALAZINE
  15. ACTEMRA [Suspect]
     Active Substance: TOCILIZUMAB
     Indication: RHEUMATOID ARTHRITIS
     Route: 042
     Dates: start: 20121119, end: 20160708
  16. TYLENOL [Concomitant]
     Active Substance: ACETAMINOPHEN
  17. AMITRIPTYLINE [Concomitant]
     Active Substance: AMITRIPTYLINE
  18. ALEVE [Concomitant]
     Active Substance: NAPROXEN SODIUM
  19. ACTEMRA [Suspect]
     Active Substance: TOCILIZUMAB
     Route: 042
     Dates: start: 20141022
  20. FERROUS GLUCONATE [Concomitant]
     Active Substance: FERROUS GLUCONATE

REACTIONS (16)
  - Weight increased [Recovering/Resolving]
  - Arthritis [Unknown]
  - Tooth disorder [Recovered/Resolved]
  - Hand fracture [Unknown]
  - Increased tendency to bruise [Not Recovered/Not Resolved]
  - Fluid retention [Unknown]
  - Eye injury [Not Recovered/Not Resolved]
  - Nasopharyngitis [Recovered/Resolved]
  - Blister [Recovering/Resolving]
  - Blood pressure abnormal [Unknown]
  - Drug ineffective [Unknown]
  - Rash [Unknown]
  - Fall [Unknown]
  - Infusion related reaction [Unknown]
  - Malaise [Unknown]
  - Tooth abscess [Not Recovered/Not Resolved]

NARRATIVE: CASE EVENT DATE: 2013
